FAERS Safety Report 4563845-3 (Version None)
Quarter: 2005Q1

REPORT INFORMATION
  Report Type: 
  Country: None (occurrence: None)
  Receive Date: 20050128
  Receipt Date: 20041006
  Transmission Date: 20050727
  Serious: No
  Sender: FDA-Public Use
  Company Number: US-GLAXOSMITHKLINE-A0528800A

PATIENT
  Age: 38 Year
  Sex: Male
  Weight: 90 kg

DRUGS (6)
  1. LEXIVA [Suspect]
     Indication: HIV INFECTION
     Dosage: 700MG TWICE PER DAY
     Route: 048
     Dates: start: 20040915, end: 20040925
  2. RITONAVIR [Concomitant]
     Dosage: 100U TWICE PER DAY
     Route: 048
  3. INVIRASE [Concomitant]
     Dosage: 1000MG TWICE PER DAY
     Route: 048
  4. VIREAD [Concomitant]
     Dosage: 300MG PER DAY
     Route: 048
  5. PRINIVIL [Concomitant]
     Dosage: 10U PER DAY
     Route: 048
  6. LIPITOR [Concomitant]
     Dosage: 20U PER DAY
     Route: 048

REACTIONS (1)
  - RASH PAPULAR [None]
